FAERS Safety Report 12738106 (Version 20)
Quarter: 2019Q3

REPORT INFORMATION
  Report Type: Report from Study
  Country: FI (occurrence: FI)
  Receive Date: 20160913
  Receipt Date: 20190702
  Transmission Date: 20191004
  Serious: Yes (Hospitalization, Other)
  Sender: FDA-Public Use
  Company Number: FI-SA-2015SA076433

PATIENT
  Age: 42 Year
  Sex: Male
  Weight: 91.9 kg

DRUGS (36)
  1. HISTEC [Concomitant]
     Active Substance: CETIRIZINE HYDROCHLORIDE
     Indication: PROPHYLAXIS
     Dosage: 10 MG,QD
     Route: 048
     Dates: start: 20150413, end: 20150417
  2. ZOPINOX [Concomitant]
     Active Substance: ZOPICLONE
     Indication: DRUG THERAPY
     Dosage: 7.5 MG,QD
     Route: 048
     Dates: start: 20051118
  3. GEFINA [Concomitant]
     Indication: ALOPECIA
  4. PREDNISOLONE. [Concomitant]
     Active Substance: PREDNISOLONE
     Indication: DRUG THERAPY
     Dosage: 80 MG,QD
     Route: 048
     Dates: start: 20150423, end: 20150423
  5. DIMETICONE [Concomitant]
     Active Substance: DIMETHICONE
     Indication: DRUG THERAPY
     Dosage: UNK UNK,QD
     Route: 048
     Dates: start: 20150414, end: 20150414
  6. BURANA [Concomitant]
     Active Substance: IBUPROFEN
     Indication: PYREXIA
     Dosage: 300 MG,QD
     Route: 048
     Dates: start: 20150415, end: 20150415
  7. SOLU-MEDROL [Concomitant]
     Active Substance: METHYLPREDNISOLONE SODIUM SUCCINATE
     Dosage: 1000 MG,QD
     Route: 042
     Dates: start: 20160426, end: 20160428
  8. PEGORION [Concomitant]
     Active Substance: POLYETHYLENE GLYCOL 4000
     Indication: CONSTIPATION
  9. SIRDALUD [Concomitant]
     Active Substance: TIZANIDINE
     Indication: HEADACHE
  10. GEFINA [Concomitant]
     Indication: DRUG THERAPY
     Dosage: 1 MG,QD
     Route: 048
     Dates: start: 20100101
  11. BURANA [Concomitant]
     Active Substance: IBUPROFEN
     Dosage: 300 MG,QD
     Route: 048
     Dates: start: 20150522
  12. ALEMTUZUMAB [Suspect]
     Active Substance: ALEMTUZUMAB
     Indication: MULTIPLE SCLEROSIS RELAPSE
     Dosage: 12 MG,QD
     Route: 041
     Dates: start: 20150413, end: 20150417
  13. ACICLOVIR [Concomitant]
     Active Substance: ACYCLOVIR
     Dosage: UNK UNK, UNK
     Route: 065
  14. SIRDALUD [Concomitant]
     Active Substance: TIZANIDINE
     Indication: DRUG THERAPY
     Dosage: 4 MG,QD
     Route: 048
     Dates: start: 20130412
  15. BURANA [Concomitant]
     Active Substance: IBUPROFEN
     Indication: HEADACHE
     Dosage: 600 MG,QD
     Route: 048
     Dates: start: 20150419, end: 20150521
  16. SOMAC [Concomitant]
     Active Substance: PANTOPRAZOLE SODIUM
     Indication: PROPHYLAXIS
     Dosage: 40 MG,UNK
     Route: 048
     Dates: start: 20140709
  17. PROPRAL [Concomitant]
     Indication: SINUS TACHYCARDIA
     Dosage: 5 MG,QD
     Route: 048
     Dates: start: 19970101
  18. SOMAC [Concomitant]
     Active Substance: PANTOPRAZOLE SODIUM
     Dosage: 40 MG,QD
     Route: 048
     Dates: start: 20160426
  19. ACLOVIR [Concomitant]
     Dosage: 400 MG,QD
     Route: 048
     Dates: start: 20160426
  20. HISTEC [Concomitant]
     Active Substance: CETIRIZINE HYDROCHLORIDE
     Dosage: 10 MG,QD
     Route: 048
     Dates: start: 20160426, end: 20160428
  21. OPIPRAMOL HYDROCHLORIDE [Concomitant]
     Active Substance: OPIPRAMOL HYDROCHLORIDE
     Indication: INSOMNIA
  22. KETIPINOR [Concomitant]
     Active Substance: QUETIAPINE FUMARATE
     Indication: DRUG THERAPY
     Dosage: 150 MG,QD
     Route: 048
     Dates: start: 20100906, end: 20160131
  23. INSOMIN [NITRAZEPAM] [Concomitant]
     Indication: INSOMNIA
     Dosage: 5 MG, QD
     Route: 048
     Dates: start: 20081217
  24. ALEMTUZUMAB [Suspect]
     Active Substance: ALEMTUZUMAB
     Dosage: 12 MG,QD
     Route: 041
     Dates: start: 20160426, end: 20160428
  25. PARACETAMOL [Concomitant]
     Active Substance: ACETAMINOPHEN
     Indication: PROPHYLAXIS
     Dosage: 1000 MG,QD
     Route: 048
     Dates: start: 20150413, end: 20150417
  26. PARACETAMOL [Concomitant]
     Active Substance: ACETAMINOPHEN
     Dosage: 3000 MG,QD
     Route: 048
     Dates: start: 20160426, end: 20160428
  27. PEGORION [Concomitant]
     Active Substance: POLYETHYLENE GLYCOL 4000
     Indication: DRUG THERAPY
     Dosage: 12 G,QD
     Route: 048
     Dates: start: 20050101
  28. ZOPINOX [Concomitant]
     Active Substance: ZOPICLONE
     Indication: INSOMNIA
  29. DIMETICONE [Concomitant]
     Active Substance: DIMETHICONE
     Dosage: 10 DF,QD
     Route: 048
     Dates: start: 20150415, end: 20150415
  30. CORTISONE [Concomitant]
     Active Substance: CORTISONE
     Dosage: UNK
  31. SOLU-MEDROL [Concomitant]
     Active Substance: METHYLPREDNISOLONE SODIUM SUCCINATE
     Indication: PROPHYLAXIS
     Dosage: 1000 MG,QD
     Route: 042
     Dates: start: 20150413, end: 20150417
  32. ACLOVIR [Concomitant]
     Indication: PROPHYLAXIS
     Dosage: 400 MG,QD
     Route: 048
     Dates: start: 20150413, end: 20150713
  33. KETIPINOR [Concomitant]
     Active Substance: QUETIAPINE FUMARATE
     Indication: INSOMNIA
     Dosage: 250 MG,QD
     Route: 048
     Dates: start: 20160201
  34. NOVORAPID [Concomitant]
     Active Substance: INSULIN ASPART
     Indication: PROPHYLAXIS
     Dosage: 5 IU,QD
     Route: 058
     Dates: start: 20160427, end: 20160427
  35. OPIPRAMOL HYDROCHLORIDE [Concomitant]
     Active Substance: OPIPRAMOL HYDROCHLORIDE
     Indication: DRUG THERAPY
     Dosage: 5 MG,QD
     Route: 048
     Dates: start: 20081217
  36. DIMETICONE [Concomitant]
     Active Substance: DIMETHICONE
     Indication: LACTOSE INTOLERANCE
     Dosage: 5 DF,QD
     Route: 048
     Dates: start: 20150414, end: 20150414

REACTIONS (36)
  - Nausea [Recovered/Resolved]
  - Oropharyngeal pain [Recovered/Resolved]
  - Bronchitis [Recovered/Resolved]
  - Acute sinusitis [Recovered/Resolved]
  - Herpes zoster [Recovered/Resolved]
  - Headache [Recovered/Resolved]
  - Fatigue [Recovered/Resolved]
  - Anal fissure [Recovering/Resolving]
  - Nasopharyngitis [Recovered/Resolved]
  - Nasopharyngitis [Not Recovered/Not Resolved]
  - Immune thrombocytopenic purpura [Recovered/Resolved]
  - Oropharyngeal pain [Recovered/Resolved]
  - Myalgia [Recovered/Resolved]
  - Headache [Recovered/Resolved]
  - Hepatic enzyme increased [Recovered/Resolved]
  - Peripheral swelling [Recovered/Resolved]
  - Oropharyngeal pain [Recovering/Resolving]
  - Tachycardia [Recovered/Resolved]
  - Rash [Recovered/Resolved]
  - Tooth fracture [Recovered/Resolved]
  - Anal infection [Recovered/Resolved]
  - Folliculitis [Recovered/Resolved]
  - Dermatophytosis [Recovered/Resolved]
  - Fatigue [Not Recovered/Not Resolved]
  - Depression [Not Recovered/Not Resolved]
  - Prostatitis [Recovered/Resolved]
  - C-reactive protein increased [Recovered/Resolved]
  - Hyperthyroidism [Not Recovered/Not Resolved]
  - Thrombophlebitis [Recovered/Resolved]
  - Prostatitis [Recovering/Resolving]
  - Nasopharyngitis [Recovered/Resolved]
  - Nasopharyngitis [Recovered/Resolved]
  - Hypothyroidism [Recovered/Resolved with Sequelae]
  - Hyperthyroidism [Recovered/Resolved]
  - Electrocardiogram QT prolonged [Recovered/Resolved]
  - Gastroenteritis [Recovered/Resolved]

NARRATIVE: CASE EVENT DATE: 20150413
